FAERS Safety Report 8179938-8 (Version None)
Quarter: 2012Q1

REPORT INFORMATION
  Report Type: 
  Country: None (occurrence: None)
  Receive Date: 20120229
  Receipt Date: 20120214
  Transmission Date: 20120608
  Serious: Yes (Death, Hospitalization)
  Sender: FDA-Public Use
  Company Number: 2012HGS-003099

PATIENT
  Age: 57 Year
  Sex: Female
  Weight: 63.5036 kg

DRUGS (29)
  1. LISINOPRIL [Concomitant]
  2. TOCOPHERYL ACETATE, CALCIUM PHOSPHATE DIBASIC, COPPER  SULFATE, POTASS [Concomitant]
  3. XCLAIR (HYALURONATE SODIUM)(HYALURONATE SODIUM) [Concomitant]
  4. METHOTREXATE [Concomitant]
  5. MEGA MULTI VITAMIN/MINERALS(MULTIVITAMIN AND MINERAL)(ASCORBIC ACID, P [Concomitant]
  6. PLAQUENIL (HYDROXYCHLOROQUINE SULFATE)(HYDROXYCHLOROQUINE SULFATE) [Concomitant]
  7. EVOXAC [Concomitant]
  8. RESTASIS (CICLOSPORIN) (CICLOSPORIN) [Concomitant]
  9. CARAFATE (SUCRALFATE)(SUCRALFATE) [Concomitant]
  10. IMURAN [Concomitant]
  11. RELPAX ( ELETRIPTAN HYDROBROMIDE) (ELETRIPTAN HYDROBROMIDE) [Concomitant]
  12. BENLYSTA [Suspect]
     Indication: SYSTEMIC LUPUS ERYTHEMATOSUS
     Dosage: 720 MG,  INTRAVENOUS DRIP
     Route: 041
     Dates: start: 20111206, end: 20111206
  13. HYDROCHLOROTHIAZIDE [Concomitant]
  14. BONIVA (IBANDRONATE SODIUM) (IBANDRONATE SODIUM) [Concomitant]
  15. NEURONTIN [Concomitant]
  16. WELLBUTRIN SR(BUPROPION HYDROCHLORIDE ) ( BUPROPION HYDROCHLORIDE) [Concomitant]
  17. CLOBETASOL PROPIONATE (CLOBETASOL PROPIONATE) (CLOBETASOL PROPIONATE) [Concomitant]
  18. B COMPLEX C FOLIC ACID(ALLBEE WITH C)(ASCORBIC ACID, PYRIDOXINE HYDROC [Concomitant]
  19. TOPAMAX (TOPI RAMATE ) (TOPI RAMATE ) [Concomitant]
  20. SYNTHROID (LEVOTHYROXINE SODIUM)(LEVOTHYROXINE SODIUM) [Concomitant]
  21. CLONAZEPAM [Concomitant]
  22. DIFLORASONE DIACETATE (DIFLORASONE DIACETATE) (DI FLORASONE DIACETATE) [Concomitant]
  23. VALTREX ( VALACI CLOVI R HYDROCHLORIDE ) ( VALACI CLOVI R HYDROCHLORID [Concomitant]
  24. PREDNISONE [Concomitant]
  25. BL CALCIUM 600 WITH VITAMIN D(CALCIUM D3 /01483701/)(COLECALCIFEROL, C [Concomitant]
  26. LIDODERM (LIDOCAINE) (LIDOCAINE) [Concomitant]
  27. CLOBETA PLUS CREAM (CLOBETASOL PROPIONATE)(CLOBETASOL PROPIONATE) [Concomitant]
  28. FOLIC ACID [Concomitant]
  29. IBUPROFEN TABLETS [Concomitant]

REACTIONS (4)
  - RENAL FAILURE [None]
  - DYSPNOEA [None]
  - SEPTIC SHOCK [None]
  - BLOOD GLUCOSE DECREASED [None]
